FAERS Safety Report 6058508-1 (Version None)
Quarter: 2009Q1

REPORT INFORMATION
  Report Type: 
  Country: None (occurrence: None)
  Receive Date: 20090128
  Receipt Date: 20090112
  Transmission Date: 20090719
  Serious: Yes (Hospitalization)
  Sender: FDA-Public Use
  Company Number: 2009S1000663

PATIENT
  Age: 36 Year
  Sex: Female

DRUGS (1)
  1. MIRTAZAPINE [Suspect]
     Indication: DEPRESSION
     Dosage: 15 MG; DAILY; ORAL
     Route: 048
     Dates: start: 20080716, end: 20080719

REACTIONS (1)
  - DRUG HYPERSENSITIVITY [None]
